FAERS Safety Report 4300966-4 (Version None)
Quarter: 2004Q1

REPORT INFORMATION
  Report Type: 
  Country: None (occurrence: None)
  Receive Date: 20040218
  Receipt Date: 20040106
  Transmission Date: 20041129
  Serious: No
  Sender: FDA-Public Use
  Company Number: 2004-01-0134

PATIENT

DRUGS (2)
  1. PEG-INTRON [Suspect]
     Indication: HEPATITIS C
     Route: 058
  2. REBETOL [Suspect]
     Indication: HEPATITIS C
     Route: 048

REACTIONS (1)
  - RASH PRURITIC [None]
